FAERS Safety Report 20320716 (Version 1)
Quarter: 2022Q1

REPORT INFORMATION
  Report Type: Spontaneous
  Country: FR (occurrence: FR)
  Receive Date: 20220111
  Receipt Date: 20220111
  Transmission Date: 20220424
  Serious: Yes (Congenital Anomaly, Other)
  Sender: FDA-Public Use
  Company Number: FR-JNJFOC-20211226004

PATIENT

DRUGS (1)
  1. SPORANOX [Suspect]
     Active Substance: ITRACONAZOLE
     Indication: Hyper IgE syndrome
     Route: 064
     Dates: start: 202105

REACTIONS (6)
  - Congenital central nervous system anomaly [Not Recovered/Not Resolved]
  - Hypoplastic left heart syndrome [Not Recovered/Not Resolved]
  - Duodenal atresia [Not Recovered/Not Resolved]
  - Multiple congenital abnormalities [Not Recovered/Not Resolved]
  - Single umbilical artery [Not Recovered/Not Resolved]
  - Foetal exposure during pregnancy [Unknown]
